FAERS Safety Report 11319649 (Version 2)
Quarter: 2015Q4

REPORT INFORMATION
  Report Type: Report from Study
  Country: JP (occurrence: JP)
  Receive Date: 20150729
  Receipt Date: 20151209
  Transmission Date: 20160304
  Serious: Yes (Other)
  Sender: FDA-Public Use
  Company Number: JP-AMGEN-JPNNI2015076653

PATIENT
  Age: 76 Year
  Sex: Male
  Weight: 56 kg

DRUGS (7)
  1. ZOVIRAX [Concomitant]
     Active Substance: ACYCLOVIR
     Dosage: 200 MG, QD
     Route: 048
     Dates: start: 20130313
  2. CARDENALIN [Concomitant]
     Active Substance: DOXAZOSIN MESYLATE
     Dosage: 2 MG, QD
     Route: 048
  3. VELCADE [Concomitant]
     Active Substance: BORTEZOMIB
     Dosage: UNK
     Route: 065
     Dates: start: 20140129
  4. LENADEX [Concomitant]
     Active Substance: DEXAMETHASONE ACETATE
     Dosage: UNK
     Route: 065
     Dates: start: 20140129, end: 20140521
  5. RABEPRAZOLE NA [Concomitant]
     Active Substance: RABEPRAZOLE SODIUM
     Dosage: 10 MG, QD
     Route: 048
     Dates: start: 20121206
  6. DENOSUMAB [Suspect]
     Active Substance: DENOSUMAB
     Indication: PLASMA CELL MYELOMA
     Dosage: 120 MG, UNK
     Route: 058
     Dates: start: 20130911, end: 20140423
  7. CALCIUM LACTATE [Concomitant]
     Active Substance: CALCIUM LACTATE
     Dosage: 3 G, QD
     Route: 048
     Dates: start: 20130911, end: 20140521

REACTIONS (1)
  - Osteonecrosis of jaw [Not Recovered/Not Resolved]

NARRATIVE: CASE EVENT DATE: 20140521
